FAERS Safety Report 7272600-5 (Version None)
Quarter: 2011Q1

REPORT INFORMATION
  Report Type: 
  Country: None (occurrence: None)
  Receive Date: 20110128
  Receipt Date: 20110113
  Transmission Date: 20110831
  Serious: Yes (Hospitalization, Other)
  Sender: FDA-Public Use
  Company Number: 1000018264

PATIENT
  Age: 43 Year
  Sex: Male

DRUGS (9)
  1. CARVEDILOL (CARVEDILOL) (TABLETS) (CARVEDILOL) [Concomitant]
  2. ESCITALOPRAM OXALATE [Suspect]
     Indication: PROPHYLAXIS
     Dosage: 10 MG (10 MG, 1 IN 1 D), ORAL
     Route: 048
     Dates: start: 20101015
  3. RAMIPRIL (RAMIPRIL) (TABLETS) (RAMIPRIL) [Concomitant]
  4. SPIRONOLAKTON (SPIRONOLACTONE) (TABLETS) (SPIRONOLACTONE) [Concomitant]
  5. DIGOXIN (DIGOXIN) (0.25 MILLIGRAM, TABLETS) (DIGOXIN) [Concomitant]
  6. CLOPIDOGREL (CLOPIDOGREL) (TABLETS) (CLOPIDOGREL) [Concomitant]
  7. WARFARIN (WARFARIN) (TABLETS) (WARFARIN) [Concomitant]
  8. FUROSEMIDE (FUROSEMIDE) (TABLETS) (FUROSEMIDE) [Concomitant]
  9. ROSUVASTATINE (ROSUVASTATIN CALCIUM) (TABLETS) (ROSUVASTATIN CALCIUM) [Concomitant]

REACTIONS (5)
  - PULMONARY HAEMORRHAGE [None]
  - HAEMORRHAGE [None]
  - PALLOR [None]
  - HAEMOGLOBIN DECREASED [None]
  - PNEUMONIA [None]
